FAERS Safety Report 4462696-8 (Version None)
Quarter: 2004Q3

REPORT INFORMATION
  Report Type: 
  Country: None (occurrence: None)
  Receive Date: 20040927
  Receipt Date: 20040914
  Transmission Date: 20050211
  Serious: Yes (Other)
  Sender: FDA-Public Use
  Company Number: 2004051397

PATIENT
  Age: 77 Year
  Sex: Male

DRUGS (3)
  1. DILANTIN [Suspect]
     Indication: CONVULSION
  2. NEURONTIN [Suspect]
     Indication: CONVULSION
  3. PHENYTOIN [Suspect]
     Indication: CONVULSION
     Dates: start: 20040101

REACTIONS (9)
  - ANTICONVULSANT DRUG LEVEL DECREASED [None]
  - BALANCE DISORDER [None]
  - CONVULSION [None]
  - FATIGUE [None]
  - MEMORY IMPAIRMENT [None]
  - OSTEOPOROSIS [None]
  - PHARMACEUTICAL PRODUCT COMPLAINT [None]
  - SOMNOLENCE [None]
  - SPEECH DISORDER [None]
